FAERS Safety Report 6392432-X (Version None)
Quarter: 2009Q4

REPORT INFORMATION
  Report Type: 
  Country: None (occurrence: None)
  Receive Date: 20091005
  Receipt Date: 20090921
  Transmission Date: 20100525
  Serious: Yes (Hospitalization)
  Sender: FDA-Public Use
  Company Number: 2009-01516

PATIENT
  Age: 58 Year
  Sex: Male

DRUGS (14)
  1. VELCADE [Suspect]
     Indication: MULTIPLE MYELOMA
     Dosage: 1.3 MG, INTRAVENOUS
     Route: 042
     Dates: start: 20090304, end: 20090403
  2. GABAPENTIN [Concomitant]
  3. WARFARIN SODIUM [Concomitant]
  4. DIAZEPAM [Concomitant]
  5. ACYCLOVIR [Concomitant]
  6. QUININE SULPHATE (QUININE SULPHATE) [Concomitant]
  7. OMEPRAZOLE [Concomitant]
  8. PENICILLIN (BENZYLPENICILLIN SODIUM) [Concomitant]
  9. SENNA (SENNA) [Concomitant]
  10. DOSULEPIN (DOSULEPIN) [Concomitant]
  11. MORPHINE SULFATE [Concomitant]
  12. MORPHINE SULFATE [Concomitant]
  13. PARACETAMOL       (PARACETAMOL) [Concomitant]
  14. DEXAMETHASONE [Concomitant]

REACTIONS (6)
  - BACK DISORDER [None]
  - BREAST DISORDER [None]
  - FAT NECROSIS [None]
  - LOWER RESPIRATORY TRACT INFECTION [None]
  - MASS [None]
  - PAIN [None]
